FAERS Safety Report 11381639 (Version 1)
Quarter: 2015Q3

REPORT INFORMATION
  Report Type: Spontaneous
  Country: CH (occurrence: CH)
  Receive Date: 20150814
  Receipt Date: 20150814
  Transmission Date: 20151125
  Serious: Yes (Other)
  Sender: FDA-Public Use
  Company Number: CH-PFIZER INC-2015111601

PATIENT
  Sex: Female
  Weight: 3.7 kg

DRUGS (5)
  1. TRANXILIUM [Concomitant]
     Active Substance: CLORAZEPATE DIPOTASSIUM
     Dosage: 10 MG, 1X/DAY
     Route: 064
  2. XELJANZ [Suspect]
     Active Substance: TOFACITINIB CITRATE
     Indication: RHEUMATOID ARTHRITIS
     Dosage: 5 MG, 2X/DAY
     Route: 064
     Dates: start: 20140301, end: 20141015
  3. XELJANZ [Suspect]
     Active Substance: TOFACITINIB CITRATE
     Indication: POLYARTHRITIS
  4. DAFALGAN [Concomitant]
     Active Substance: ACETAMINOPHEN
     Dosage: 1 G, 1-2X/DAY
     Route: 064
  5. CITALOPRAM [Concomitant]
     Active Substance: CITALOPRAM HYDROBROMIDE
     Dosage: 20 MG, 1X/DAY
     Route: 064

REACTIONS (6)
  - Ventricular septal defect [Unknown]
  - Poor weight gain neonatal [Unknown]
  - Meningitis viral [Unknown]
  - Eating disorder [Unknown]
  - Foetal exposure during pregnancy [Unknown]
  - Gastroenteritis [Unknown]
